FAERS Safety Report 10645590 (Version 1)
Quarter: 2014Q4

REPORT INFORMATION
  Report Type: Spontaneous
  Country: PL (occurrence: PL)
  Receive Date: 20141211
  Receipt Date: 20141211
  Transmission Date: 20150529
  Serious: No
  Sender: FDA-Public Use
  Company Number: PL-JNJFOC-20141200485

PATIENT
  Sex: Female

DRUGS (1)
  1. DUROGESIC [Suspect]
     Active Substance: FENTANYL
     Indication: PAIN
     Route: 062

REACTIONS (6)
  - Wrong technique in drug usage process [Unknown]
  - Nausea [Unknown]
  - Drug ineffective [Unknown]
  - Drug effect increased [Unknown]
  - Vomiting [Unknown]
  - Dizziness [Unknown]
